FAERS Safety Report 11830828 (Version 1)
Quarter: 2015Q4

REPORT INFORMATION
  Report Type: Report from Study
  Country: US (occurrence: US)
  Receive Date: 20151214
  Receipt Date: 20151214
  Transmission Date: 20160305
  Serious: Yes (Other)
  Sender: FDA-Public Use
  Company Number: US-AMGEN-USASL2015132893

PATIENT
  Age: 49 Year
  Sex: Female

DRUGS (2)
  1. ENBREL [Suspect]
     Active Substance: ETANERCEPT
     Indication: ANKYLOSING SPONDYLITIS
     Dosage: UNK
     Route: 065
     Dates: start: 20150902
  2. METHOTREXATE [Concomitant]
     Active Substance: METHOTREXATE

REACTIONS (5)
  - Iritis [Not Recovered/Not Resolved]
  - Drug ineffective [Unknown]
  - Rash [Unknown]
  - Urticaria [Unknown]
  - Uveitis [Not Recovered/Not Resolved]

NARRATIVE: CASE EVENT DATE: 2015
